FAERS Safety Report 25386042 (Version 1)
Quarter: 2025Q2

REPORT INFORMATION
  Report Type: Spontaneous
  Country: US (occurrence: None)
  Receive Date: 20250531
  Receipt Date: 20250531
  Transmission Date: 20250717
  Serious: No
  Sender: FDA-CTU
  Company Number: None

PATIENT
  Age: 29 Year
  Sex: Female
  Weight: 90 kg

DRUGS (1)
  1. TIRZEPATIDE [Suspect]
     Active Substance: TIRZEPATIDE
     Indication: Weight control
     Dosage: OTHER QUANTITY : 4 INJECTION(S);?OTHER FREQUENCY : 1 X WEEKLY;?OTHER ROUTE : INJECTION;?
     Route: 050

REACTIONS (2)
  - Gastrooesophageal reflux disease [None]
  - Product substitution issue [None]

NARRATIVE: CASE EVENT DATE: 20250317
